FAERS Safety Report 8743118 (Version 2)
Quarter: 2012Q4

REPORT INFORMATION
  Report Type: 
  Country: US (occurrence: US)
  Receive Date: 20120824
  Receipt Date: 20121001
  Transmission Date: 20130627
  Serious: Yes (Other)
  Sender: FDA-Public Use
  Company Number: US-BAYER-2012-087824

PATIENT
  Age: 43 Year
  Sex: Male
  Weight: 90.7 kg

DRUGS (6)
  1. BETASERON [Suspect]
     Indication: MULTIPLE SCLEROSIS
     Dosage: 0.3 mg, QOD
     Route: 058
     Dates: start: 2006
  2. AMPYRA [Concomitant]
     Indication: GAIT DISTURBANCE
     Dosage: 10 mg, BID
     Dates: start: 2011
  3. CITALOPRAM [Concomitant]
     Indication: DEPRESSION
     Dosage: 20 mg, QD
     Dates: start: 2010
  4. CLONAZEPAM [Concomitant]
     Indication: TREMOR
     Dosage: 1 mg, TID
     Dates: start: 2012
  5. TEMAZEPAM [Concomitant]
     Indication: SLEEP DISORDER THERAPY
     Dosage: 15 mg, QD
     Dates: start: 2012
  6. VYTORIN [Concomitant]
     Indication: BLOOD CHOLESTEROL INCREASED
     Dosage: UNK UNK, QOD
     Dates: start: 2006

REACTIONS (4)
  - Injection site cellulitis [None]
  - Injection site pain [None]
  - Injection site infection [None]
  - Injection site inflammation [Recovered/Resolved]
